FAERS Safety Report 5854020-0 (Version None)
Quarter: 2008Q3

REPORT INFORMATION
  Report Type: 
  Country: None (occurrence: None)
  Receive Date: 20080822
  Receipt Date: 20080811
  Transmission Date: 20090109
  Serious: Yes (Hospitalization)
  Sender: FDA-Public Use
  Company Number: CH-WYE-H05324308

PATIENT
  Age: 87 Year
  Sex: Female

DRUGS (8)
  1. PANTOZOL [Suspect]
     Indication: GASTROOESOPHAGEAL REFLUX DISEASE
     Route: 048
  2. PANTOZOL [Suspect]
     Indication: HIATUS HERNIA
  3. SINTROM [Concomitant]
     Indication: ATRIAL FIBRILLATION
     Dosage: UNKNOWN
     Route: 048
  4. OLMESARTAN MEDOXOMIL [Concomitant]
     Indication: ESSENTIAL HYPERTENSION
     Route: 048
  5. FOSAMAX [Suspect]
     Indication: OSTEOPOROSIS
     Route: 048
     Dates: start: 20060201
  6. FOSAMAX [Suspect]
     Indication: FRACTURE
  7. CALCIMAGON [Concomitant]
     Indication: OSTEOPOROSIS
     Dosage: UNKNOWN
  8. CALCIMAGON [Concomitant]
     Indication: FRACTURE

REACTIONS (2)
  - FALL [None]
  - PATHOLOGICAL FRACTURE [None]
